FAERS Safety Report 6712947-1 (Version None)
Quarter: 2010Q2

REPORT INFORMATION
  Report Type: 
  Country: None (occurrence: None)
  Receive Date: 20100506
  Receipt Date: 20100426
  Transmission Date: 20101027
  Serious: Yes (Other)
  Sender: FDA-Public Use
  Company Number: US-JNJFOC-20090400897

PATIENT
  Sex: Female
  Weight: 47.17 kg

DRUGS (18)
  1. REMICADE [Suspect]
     Indication: ANKYLOSING SPONDYLITIS
     Route: 042
  2. REMICADE [Suspect]
     Dosage: 5 DOSES
     Route: 042
  3. REMICADE [Suspect]
     Indication: CROHN'S DISEASE
     Route: 042
  4. REMICADE [Suspect]
     Dosage: 5 DOSES
     Route: 042
  5. TOPAMAX [Suspect]
     Indication: DRUG USE FOR UNKNOWN INDICATION
  6. CYMBALTA [Concomitant]
     Indication: MIGRAINE
  7. PREDNISONE [Concomitant]
     Indication: CROHN'S DISEASE
  8. PREDNISONE [Concomitant]
     Indication: ANKYLOSING SPONDYLITIS
  9. PREDNISONE [Concomitant]
     Indication: ARTHRITIS
  10. IMURAN [Concomitant]
     Indication: ANKYLOSING SPONDYLITIS
  11. IMURAN [Concomitant]
     Indication: CROHN'S DISEASE
  12. VITAMIN D [Concomitant]
     Indication: VITAMIN D DEFICIENCY
  13. VICOPROFEN [Concomitant]
     Indication: ARTHRITIS
  14. LIALDA [Concomitant]
     Indication: CROHN'S DISEASE
  15. PENTASA [Concomitant]
     Indication: ANKYLOSING SPONDYLITIS
  16. PENTASA [Concomitant]
     Indication: CROHN'S DISEASE
  17. VITAMIN B-12 [Concomitant]
     Indication: ANKYLOSING SPONDYLITIS
  18. VITAMIN B-12 [Concomitant]
     Indication: CROHN'S DISEASE

REACTIONS (16)
  - ARTHRALGIA [None]
  - ATAXIA [None]
  - BACK PAIN [None]
  - DIARRHOEA [None]
  - DIZZINESS [None]
  - DYSPNOEA [None]
  - DYSTONIA [None]
  - GENERAL PHYSICAL HEALTH DETERIORATION [None]
  - INFUSION RELATED REACTION [None]
  - MALAISE [None]
  - MULTIPLE SCLEROSIS [None]
  - PARKINSONISM [None]
  - POSTURE ABNORMAL [None]
  - TACHYCARDIA [None]
  - VERTIGO [None]
  - WEIGHT DECREASED [None]
